FAERS Safety Report 9301898 (Version 2)
Quarter: 2013Q3

REPORT INFORMATION
  Report Type: Spontaneous
  Country: FR (occurrence: FR)
  Receive Date: 20130521
  Receipt Date: 20130725
  Transmission Date: 20140515
  Serious: Yes (Other)
  Sender: FDA-Public Use
  Company Number: FR-ABBOTT-13P-056-1091955-00

PATIENT
  Age: 67 Year
  Sex: Female

DRUGS (3)
  1. HUMIRA [Suspect]
     Indication: CROHN^S DISEASE
     Route: 058
     Dates: start: 20130201, end: 20130216
  2. HUMIRA [Suspect]
     Indication: CROHN^S DISEASE
     Dates: end: 20130318
  3. REMICADE [Suspect]
     Indication: CROHN^S DISEASE
     Dates: start: 20130403

REACTIONS (5)
  - Serum sickness [Unknown]
  - Pyrexia [Unknown]
  - Toxic skin eruption [Unknown]
  - Drug ineffective [Unknown]
  - Pruritus [Unknown]
